FAERS Safety Report 23758403 (Version 5)
Quarter: 2025Q4

REPORT INFORMATION
  Report Type: Report from Study
  Country: US (occurrence: US)
  Receive Date: 20240418
  Receipt Date: 20251113
  Transmission Date: 20260117
  Serious: Yes (Hospitalization, Other)
  Sender: TAKEDA
  Company Number: US-TAKEDA-2024TUS036814

PATIENT
  Sex: Female

DRUGS (2)
  1. HUMAN IMMUNOGLOBULIN G\HYALURONIDASE RECOMBINANT HUMAN [Suspect]
     Active Substance: HUMAN IMMUNOGLOBULIN G\HYALURONIDASE (HUMAN RECOMBINANT)
     Indication: Primary immunodeficiency syndrome
     Dosage: 30 GRAM, MONTHLY
  2. HUMAN IMMUNOGLOBULIN G\HYALURONIDASE RECOMBINANT HUMAN [Suspect]
     Active Substance: HUMAN IMMUNOGLOBULIN G\HYALURONIDASE (HUMAN RECOMBINANT)
     Indication: Immunodeficiency common variable
     Dosage: UNK

REACTIONS (9)
  - Fall [Unknown]
  - Wrist fracture [Unknown]
  - Autoimmune disorder [Unknown]
  - Mast cell activation syndrome [Unknown]
  - Fatigue [Unknown]
  - COVID-19 [Unknown]
  - Ehlers-Danlos syndrome [Unknown]
  - Postural orthostatic tachycardia syndrome [Unknown]
  - Headache [Unknown]

NARRATIVE: CASE EVENT DATE: 20240712
